FAERS Safety Report 18199318 (Version 1)
Quarter: 2020Q3

REPORT INFORMATION
  Report Type: Report from Study
  Country: US (occurrence: US)
  Receive Date: 20200826
  Receipt Date: 20200826
  Transmission Date: 20201103
  Serious: Yes (Hospitalization)
  Sender: FDA-Public Use
  Company Number: NVSC2020US229603

PATIENT
  Sex: Female

DRUGS (1)
  1. ENTRESTO [Suspect]
     Active Substance: SACUBITRIL\VALSARTAN
     Indication: PRODUCT USED FOR UNKNOWN INDICATION
     Dosage: 1 DF, BID(24/26 MG)
     Route: 048

REACTIONS (6)
  - Fall [Unknown]
  - Blood glucose decreased [Unknown]
  - Myalgia [Unknown]
  - Exposure to SARS-CoV-2 [Unknown]
  - Joint injury [Unknown]
  - Neuralgia [Unknown]
